FAERS Safety Report 8349458-6 (Version None)
Quarter: 2012Q2

REPORT INFORMATION
  Report Type: 
  Country: None (occurrence: None)
  Receive Date: 20120510
  Receipt Date: 20100831
  Transmission Date: 20120825
  Serious: No
  Sender: FDA-Public Use
  Company Number: US-TEVA-2010004678

PATIENT
  Sex: Female
  Weight: 136.2 kg

DRUGS (23)
  1. NUVIGIL [Suspect]
     Indication: SLEEP APNOEA SYNDROME
     Dosage: 150 MILLIGRAM;
     Route: 048
     Dates: start: 20090801, end: 20100201
  2. ZOCOR [Concomitant]
     Indication: BLOOD CHOLESTEROL
  3. GLYBURIDE [Concomitant]
     Indication: DIABETES MELLITUS
     Dates: start: 20100101
  4. STOOL SOFTENER [Concomitant]
  5. ACTOS [Concomitant]
     Indication: DIABETES MELLITUS
     Dates: start: 20100401
  6. BENTYL [Concomitant]
     Indication: ABDOMINAL DISCOMFORT
  7. ASPIRIN [Concomitant]
     Dates: start: 20080101
  8. BUMETANIDE [Concomitant]
     Indication: DIURETIC THERAPY
  9. LORCET-HD [Concomitant]
     Indication: PAIN IN EXTREMITY
  10. FUROSEMIDE [Concomitant]
     Indication: DIURETIC THERAPY
  11. FLUCONAZOLE [Concomitant]
     Indication: DYSPNOEA
  12. FERROUS SULFATE TAB [Concomitant]
     Indication: ANAEMIA
  13. NUVIGIL [Suspect]
     Dosage: 250 MILLIGRAM;
     Route: 048
     Dates: start: 20100201
  14. OMEPRAZOLE [Concomitant]
     Indication: GASTROOESOPHAGEAL REFLUX DISEASE
  15. ARTHRITIS PAIN RELIEVER [Concomitant]
     Indication: BURSITIS
  16. CYMBALTA [Concomitant]
     Indication: DEPRESSION
  17. FEXOFENADINE [Concomitant]
     Indication: BRONCHITIS
  18. METFORMIN HCL [Concomitant]
     Indication: DIABETES MELLITUS
  19. ARTHRITIS PAIN RELIEVER [Concomitant]
     Indication: ARTHRITIS
  20. BENAZEPRIL HYDROCHLORIDE [Concomitant]
     Indication: BLOOD PRESSURE
  21. CLOTRIMAZOLE [Concomitant]
     Indication: TONGUE DISORDER
     Dates: start: 20100201
  22. FEXOFENADINE [Concomitant]
     Indication: ASTHMA
  23. FISH OIL [Concomitant]
     Indication: ARTHRITIS

REACTIONS (1)
  - DRUG INEFFECTIVE [None]
